FAERS Safety Report 25848630 (Version 1)
Quarter: 2025Q3

REPORT INFORMATION
  Report Type: Spontaneous
  Country: CN (occurrence: CN)
  Receive Date: 20250925
  Receipt Date: 20250925
  Transmission Date: 20251021
  Serious: Yes (Life-Threatening, Hospitalization)
  Sender: ELI LILLY AND COMPANY
  Company Number: CN-Merck Healthcare KGaA-2025048182

PATIENT
  Age: 30 Year
  Sex: Female
  Weight: 49 kg

DRUGS (10)
  1. ERBITUX [Suspect]
     Active Substance: CETUXIMAB
     Indication: Rectal cancer
     Route: 041
     Dates: start: 20250911, end: 20250911
  2. IRINOTECAN HYDROCHLORIDE [Suspect]
     Active Substance: IRINOTECAN HYDROCHLORIDE
     Indication: Rectal cancer
     Dosage: 260 MG, DAILY
     Route: 041
     Dates: start: 20250911, end: 20250911
  3. FLUOROURACIL [Suspect]
     Active Substance: FLUOROURACIL
     Indication: Rectal cancer
     Dosage: 3500 MG, DAILY
     Route: 041
     Dates: start: 20250911, end: 20250911
  4. FLUOROURACIL [Suspect]
     Active Substance: FLUOROURACIL
     Dosage: 580 MG, DAILY
     Route: 042
     Dates: start: 20250911, end: 20250911
  5. LEUCOVORIN CALCIUM [Suspect]
     Active Substance: LEUCOVORIN CALCIUM
     Indication: Rectal cancer
     Dosage: 580 MG, DAILY
     Route: 041
     Dates: start: 20250911, end: 20250911
  6. SODIUM CHLORIDE [Suspect]
     Active Substance: SODIUM CHLORIDE
     Indication: Rectal cancer
     Dosage: 250 ML, DAILY
     Route: 041
     Dates: start: 20250911, end: 20250911
  7. SODIUM CHLORIDE [Suspect]
     Active Substance: SODIUM CHLORIDE
     Dosage: 10 ML, DAILY
     Route: 042
     Dates: start: 20250911, end: 20250911
  8. SODIUM CHLORIDE [Suspect]
     Active Substance: SODIUM CHLORIDE
     Dosage: 160 ML, DAILY
     Route: 041
     Dates: start: 20250911, end: 20250911
  9. SODIUM CHLORIDE [Suspect]
     Active Substance: SODIUM CHLORIDE
     Dosage: 250 ML, DAILY
     Route: 041
     Dates: start: 20250911, end: 20250911
  10. DEXTROSE [Concomitant]
     Active Substance: DEXTROSE MONOHYDRATE
     Indication: Rectal cancer
     Dosage: 250 ML, DAILY
     Route: 041
     Dates: start: 20250911, end: 20250911

REACTIONS (2)
  - White blood cell count decreased [Recovering/Resolving]
  - Pyrexia [Recovering/Resolving]

NARRATIVE: CASE EVENT DATE: 20250915
